FAERS Safety Report 8974702 (Version 2)
Quarter: 2013Q1

REPORT INFORMATION
  Report Type: Report from Study
  Country: FR (occurrence: FR)
  Receive Date: 20121219
  Receipt Date: 20130329
  Transmission Date: 20140127
  Serious: Yes (Hospitalization)
  Sender: FDA-Public Use
  Company Number: FR-PFIZER INC-2012316482

PATIENT
  Age: 67 Year
  Sex: Female
  Weight: 70 kg

DRUGS (24)
  1. ALDACTONE [Suspect]
     Dosage: UNK
     Dates: start: 20071024, end: 20090323
  2. ALDACTONE [Suspect]
     Dosage: UNK
     Dates: start: 20090512, end: 20090518
  3. METHOXY POLYETHYLENE GLYCOL-EPOETIN BETA [Suspect]
     Indication: RENAL FAILURE CHRONIC
     Dosage: 120 UG, MONTHLY
     Route: 058
     Dates: start: 20090316, end: 20090316
  4. METHOXY POLYETHYLENE GLYCOL-EPOETIN BETA [Suspect]
     Dosage: 200 UG, TWICE MONTHLY
     Route: 058
     Dates: start: 20090519
  5. LASILIX [Suspect]
     Dosage: 1 G, UNK
     Dates: start: 20071023, end: 20090323
  6. LASILIX [Suspect]
     Dosage: UNK
     Dates: start: 20090414
  7. LASILIX [Suspect]
     Dosage: UNK
     Dates: start: 20090504, end: 20090526
  8. DIFFU K [Concomitant]
     Dosage: UNK
     Dates: start: 20090109, end: 20090323
  9. DIFFU K [Concomitant]
     Dosage: UNK
     Dates: start: 20090515
  10. INEXIUM [Concomitant]
     Dosage: UNK
     Dates: start: 20090327
  11. CALCIDIA [Concomitant]
     Dosage: UNK
     Dates: start: 20090331
  12. INSULATARD [Concomitant]
     Dosage: UNK
     Dates: start: 20090331, end: 20090515
  13. NOVORAPID [Concomitant]
     Dosage: UNK
     Dates: start: 20090327
  14. ALBUMINE [Concomitant]
     Dosage: UNK
     Dates: start: 20090331, end: 20090510
  15. ESIDREX [Concomitant]
     Dosage: UNK
     Dates: start: 20090505, end: 20090518
  16. SELOKEN [Concomitant]
     Dosage: UNK
     Dates: start: 20090507
  17. NEORECORMON [Concomitant]
     Dosage: UNK
     Dates: start: 20090509, end: 20090509
  18. NEORECORMON [Concomitant]
     Dosage: UNK
     Dates: start: 20090515, end: 20090515
  19. NEORECORMON [Concomitant]
     Dosage: UNK
     Dates: start: 20090518, end: 20090518
  20. LACTULOSE [Concomitant]
     Dosage: UNK
     Dates: start: 20090513
  21. NOVOMIX [Concomitant]
     Dosage: UNK
     Dates: start: 20090515
  22. ROCEPHINE [Concomitant]
     Dosage: UNK
     Dates: start: 20090522, end: 20090528
  23. CALCIPARIN [Concomitant]
     Dosage: UNK
     Dates: start: 20090504, end: 20090518
  24. NOROXIN [Concomitant]
     Dosage: UNK
     Dates: start: 20090610, end: 20090723

REACTIONS (2)
  - Oedema [Recovered/Resolved]
  - Hypokalaemia [Recovered/Resolved]
